FAERS Safety Report 25361203 (Version 3)
Quarter: 2025Q2

REPORT INFORMATION
  Report Type: Report from Study
  Country: GR (occurrence: GR)
  Receive Date: 20250527
  Receipt Date: 20250613
  Transmission Date: 20250717
  Serious: Yes (Death, Life-Threatening, Hospitalization, Other)
  Sender: GENMAB
  Company Number: GR-ABBVIE-6291192

PATIENT
  Age: 77 Year
  Sex: Male
  Weight: 72 kg

DRUGS (2)
  1. EPCORITAMAB [Suspect]
     Active Substance: EPCORITAMAB
     Indication: Diffuse large B-cell lymphoma
     Dosage: 0.16 MILLIGRAM, WEEKLY
     Route: 058
     Dates: start: 20250414, end: 20250414
  2. EPCORITAMAB [Suspect]
     Active Substance: EPCORITAMAB
     Dosage: 0.16 MILLIGRAM, WEEKLY
     Route: 058
     Dates: start: 20250428, end: 20250428

REACTIONS (3)
  - Haemophagocytic lymphohistiocytosis [Fatal]
  - Pyrexia [Recovered/Resolved]
  - Cytokine release syndrome [Recovered/Resolved with Sequelae]

NARRATIVE: CASE EVENT DATE: 20250415
